FAERS Safety Report 15420229 (Version 1)
Quarter: 2018Q3

REPORT INFORMATION
  Report Type: Spontaneous
  Country: US (occurrence: US)
  Receive Date: 20180924
  Receipt Date: 20180924
  Transmission Date: 20181010
  Serious: Yes (Hospitalization)
  Sender: FDA-Public Use
  Company Number: US-MYLANLABS-2018M1069854

PATIENT
  Age: 58 Year
  Sex: Female

DRUGS (4)
  1. MESALAMINE. [Concomitant]
     Active Substance: MESALAMINE
     Indication: CROHN^S DISEASE
     Route: 065
  2. BUDESONIDE. [Suspect]
     Active Substance: BUDESONIDE
     Indication: CROHN^S DISEASE
     Route: 065
  3. AZATHIOPRINE. [Suspect]
     Active Substance: AZATHIOPRINE
     Indication: CROHN^S DISEASE
     Route: 065
  4. INFLIXIMAB [Suspect]
     Active Substance: INFLIXIMAB
     Indication: CROHN^S DISEASE
     Route: 065

REACTIONS (13)
  - Infectious colitis [Recovering/Resolving]
  - Cytomegalovirus viraemia [Recovering/Resolving]
  - Acute kidney injury [Recovering/Resolving]
  - Nocardiosis [Recovering/Resolving]
  - Cytomegalovirus colitis [Recovering/Resolving]
  - Pneumonia cytomegaloviral [Recovering/Resolving]
  - Portal venous gas [Recovering/Resolving]
  - Adrenal haemorrhage [Recovering/Resolving]
  - Pulmonary haemorrhage [Recovering/Resolving]
  - Sepsis [Recovering/Resolving]
  - Pancytopenia [Recovering/Resolving]
  - Acute respiratory distress syndrome [Recovering/Resolving]
  - Lactic acidosis [Recovering/Resolving]
